FAERS Safety Report 4936686-2 (Version None)
Quarter: 2006Q1

REPORT INFORMATION
  Report Type: 
  Country: None (occurrence: None)
  Receive Date: 20060127
  Receipt Date: 20051111
  Transmission Date: 20060701
  Serious: Yes (Other)
  Sender: FDA-Public Use
  Company Number: 2005156098

PATIENT
  Age: 64 Year
  Sex: Female
  Weight: 94.8018 kg

DRUGS (3)
  1. LYRICA [Suspect]
     Indication: NEUROPATHY
     Dosage: 450 MG (150 MG, 3 IN 1 D), ORAL
     Route: 048
     Dates: start: 20051110
  2. AMITRIPTYLINE HCL [Concomitant]
  3. GABAPENTIN [Concomitant]

REACTIONS (2)
  - BALANCE DISORDER [None]
  - MUSCLE TWITCHING [None]
